FAERS Safety Report 21342636 (Version 1)
Quarter: 2022Q3

REPORT INFORMATION
  Report Type: Spontaneous
  Country: CN (occurrence: CN)
  Receive Date: 20220916
  Receipt Date: 20220916
  Transmission Date: 20221027
  Serious: Yes (Hospitalization)
  Sender: FDA-Public Use
  Company Number: CN-MACLEODS PHARMACEUTICALS US LTD-MAC2022037223

PATIENT

DRUGS (2)
  1. ACYCLOVIR [Suspect]
     Active Substance: ACYCLOVIR
     Indication: Herpes zoster
     Dosage: 500 MILLIGRAM, QD  GIVEN FOR 7 DAYS
     Route: 042
  2. ACYCLOVIR [Suspect]
     Active Substance: ACYCLOVIR
     Dosage: 750 MILLIGRAM, BID, COMBINED WITH 27.5G/DAY INTRAVENOUS IMMUNOGLOBULIN
     Route: 042

REACTIONS (2)
  - Bickerstaff^s encephalitis [Recovering/Resolving]
  - Acute kidney injury [Recovering/Resolving]
